FAERS Safety Report 18621499 (Version 1)
Quarter: 2020Q4

REPORT INFORMATION
  Report Type: Spontaneous
  Country: US (occurrence: US)
  Receive Date: 20201216
  Receipt Date: 20201216
  Transmission Date: 20210114
  Serious: No
  Sender: FDA-Public Use
  Company Number: US-AUROBINDO-AUR-APL-2020-015201

PATIENT
  Age: 68 Year
  Sex: Male

DRUGS (13)
  1. TESTOSTERONE. [Concomitant]
     Active Substance: TESTOSTERONE
     Indication: ORCHIDECTOMY
     Dosage: UNK, ONCE A DAY
     Route: 065
  2. CLONAZEPAM. [Concomitant]
     Active Substance: CLONAZEPAM
     Indication: MUSCLE SPASMS
  3. SYNTHROID [Concomitant]
     Active Substance: LEVOTHYROXINE SODIUM
     Indication: PARATHYROIDECTOMY
     Dosage: 137 MICROGRAM, ONCE A DAY
     Route: 065
  4. TRAMADOL. [Concomitant]
     Active Substance: TRAMADOL
     Indication: GROIN PAIN
     Dosage: 50 MILLIGRAM SIX TIMES DAILY
     Route: 065
  5. MIRALAX [Concomitant]
     Active Substance: POLYETHYLENE GLYCOL 3350
     Indication: PRODUCT USED FOR UNKNOWN INDICATION
     Dosage: UNK, DAILY
     Route: 065
  6. CLONAZEPAM. [Concomitant]
     Active Substance: CLONAZEPAM
     Indication: BACK PAIN
     Dosage: 0.5 MILLIGRAM, 3 TIMES A DAY
     Route: 065
  7. CLONAZEPAM. [Concomitant]
     Active Substance: CLONAZEPAM
     Indication: NEURALGIA
  8. HYDROXYCHLOROQUINE [Concomitant]
     Active Substance: HYDROXYCHLOROQUINE
     Indication: RHEUMATIC DISORDER
     Dosage: 200 MILLIGRAM, TWO TIMES A DAY
     Route: 065
  9. VITAMIN D3 [Concomitant]
     Active Substance: CHOLECALCIFEROL
     Indication: PRODUCT USED FOR UNKNOWN INDICATION
     Dosage: 2000 INTERNATIONAL UNIT, DAILY
     Route: 065
  10. ESOMEPRAZOLE. [Concomitant]
     Active Substance: ESOMEPRAZOLE MAGNESIUM
     Indication: GASTROOESOPHAGEAL REFLUX DISEASE
     Dosage: 40 MILLIGRAM, TWO TIMES A DAY
  11. GABAPENTIN. [Concomitant]
     Active Substance: GABAPENTIN
     Indication: GROIN PAIN
     Dosage: 600 MILLIGRAM, 3 TIMES A DAY
     Route: 065
  12. DUTASTERIDE 0.5MG [Suspect]
     Active Substance: DUTASTERIDE
     Indication: DYSURIA
     Dosage: 0.5 MILLIGRAM, ONCE A DAY
     Route: 065
     Dates: start: 2019, end: 20190529
  13. CITRACAL [Concomitant]
     Active Substance: CALCIUM CITRATE
     Indication: PARATHYROIDECTOMY
     Dosage: 315 MG CALCIUM+ 200 IU VITAMIN D3, TWO TIMES A DAY
     Route: 065

REACTIONS (5)
  - Dizziness [Recovering/Resolving]
  - Unevaluable event [Unknown]
  - Malaise [Recovering/Resolving]
  - Depression [Unknown]
  - Nightmare [Unknown]

NARRATIVE: CASE EVENT DATE: 2019
